FAERS Safety Report 24173239 (Version 1)
Quarter: 2024Q3

REPORT INFORMATION
  Report Type: Spontaneous
  Country: IR (occurrence: IR)
  Receive Date: 20240805
  Receipt Date: 20240805
  Transmission Date: 20241016
  Serious: Yes (Other)
  Sender: HISUN PHARMACEUTICALS
  Company Number: IR-Hisun Pharmaceuticals-2159992

PATIENT
  Age: 63 Year
  Sex: Female

DRUGS (4)
  1. CLADRIBINE [Suspect]
     Active Substance: CLADRIBINE
     Indication: Systemic mastocytosis
  2. METOPROLOL [Concomitant]
     Active Substance: METOPROLOL
  3. PANTOPRAZOLE SODIUM [Concomitant]
     Active Substance: PANTOPRAZOLE SODIUM
  4. METFORMIN [Concomitant]
     Active Substance: METFORMIN HYDROCHLORIDE

REACTIONS (2)
  - Loss of consciousness [Unknown]
  - Bradycardia [Unknown]
